FAERS Safety Report 20607523 (Version 1)
Quarter: 2022Q1

REPORT INFORMATION
  Report Type: Spontaneous
  Country: US (occurrence: None)
  Receive Date: 20220316
  Receipt Date: 20220316
  Transmission Date: 20220423
  Serious: Yes (unspecified)
  Sender: FDA-Public Use
  Company Number: None

PATIENT
  Age: 65 Year
  Sex: Female
  Weight: 44.5 kg

DRUGS (1)
  1. SODIUM FERRIC GLUCONATE COMPLEX [Suspect]
     Active Substance: SODIUM FERRIC GLUCONATE COMPLEX
     Indication: Iron deficiency anaemia
     Dosage: FREQUENCY : WEEKLY;?
     Route: 042
     Dates: start: 20180822

REACTIONS (3)
  - Pruritus [None]
  - Erythema [None]
  - Infusion related reaction [None]

NARRATIVE: CASE EVENT DATE: 20220309
